FAERS Safety Report 8497500-4 (Version None)
Quarter: 2012Q3

REPORT INFORMATION
  Report Type: 
  Country: None (occurrence: None)
  Receive Date: 20120709
  Receipt Date: 20120613
  Transmission Date: 20120928
  Serious: No
  Sender: FDA-Public Use
  Company Number: US-AMGEN-USASP2012036849

PATIENT
  Age: 45 Year
  Sex: Female

DRUGS (3)
  1. FOLIC ACID [Concomitant]
     Dosage: UNK
  2. ENBREL [Suspect]
     Indication: PSORIATIC ARTHROPATHY
     Dosage: 50 MG, QWK
     Dates: start: 20120101
  3. METHOTREXATE [Concomitant]
     Dosage: 1 MG, UNK

REACTIONS (3)
  - ARTHRITIS [None]
  - ARTHRALGIA [None]
  - DRUG EFFECT DECREASED [None]
